FAERS Safety Report 23624119 (Version 1)
Quarter: 2024Q1

REPORT INFORMATION
  Report Type: Spontaneous
  Country: CN (occurrence: CN)
  Receive Date: 20240312
  Receipt Date: 20240312
  Transmission Date: 20240409
  Serious: Yes (Hospitalization)
  Sender: FDA-Public Use
  Company Number: CN-002147023-NVSC2024CN050483

PATIENT
  Age: 43 Year
  Sex: Female
  Weight: 70 kg

DRUGS (3)
  1. TEGRETOL [Suspect]
     Active Substance: CARBAMAZEPINE
     Indication: Schizophrenia
     Dosage: 0.200 G, TID
     Route: 048
     Dates: start: 20240120, end: 20240217
  2. TRIHEXYPHENIDYL [Concomitant]
     Active Substance: TRIHEXYPHENIDYL
     Indication: Schizophrenia
     Dosage: UNK
     Route: 048
     Dates: start: 20240120, end: 20240217
  3. LAMOTRIGINE [Concomitant]
     Active Substance: LAMOTRIGINE
     Indication: Schizophrenia
     Dosage: UNK
     Route: 048
     Dates: start: 20240120, end: 20240217

REACTIONS (11)
  - Toxic epidermal necrolysis [Recovering/Resolving]
  - Erythema [Not Recovered/Not Resolved]
  - Pruritus [Unknown]
  - Oral mucosa erosion [Recovering/Resolving]
  - Vulvar erosion [Recovering/Resolving]
  - Oral pain [Unknown]
  - Anaphylactic shock [Unknown]
  - Chills [Unknown]
  - Hyperpyrexia [Unknown]
  - Confusional state [Unknown]
  - Hypotension [Recovering/Resolving]

NARRATIVE: CASE EVENT DATE: 20240214
